FAERS Safety Report 4675325-5 (Version None)
Quarter: 2005Q2

REPORT INFORMATION
  Report Type: 
  Country: None (occurrence: None)
  Receive Date: 20050527
  Receipt Date: 20050513
  Transmission Date: 20051028
  Serious: Yes (Other)
  Sender: FDA-Public Use
  Company Number: US-KINGPHARMUSA00001-K200500640

PATIENT
  Sex: Female

DRUGS (2)
  1. CYTOMEL [Suspect]
     Route: 048
  2. LEVOXYL [Suspect]
     Route: 048

REACTIONS (4)
  - LIMB DISCOMFORT [None]
  - NEUROPATHY PERIPHERAL [None]
  - PARAESTHESIA [None]
  - VENOUS PRESSURE INCREASED [None]
